FAERS Safety Report 8601265-2 (Version None)
Quarter: 2012Q3

REPORT INFORMATION
  Report Type: 
  Country: None (occurrence: None)
  Receive Date: 20120817
  Receipt Date: 20120809
  Transmission Date: 20120928
  Serious: Yes (Hospitalization)
  Sender: FDA-Public Use
  Company Number: PHHY2012JP069691

PATIENT
  Age: 47 Year
  Sex: Female

DRUGS (5)
  1. FAMVIR [Suspect]
     Dosage: 500 MG, TID
  2. MUCOSTA [Concomitant]
     Dates: start: 20120522
  3. FAMVIR [Suspect]
     Indication: HERPES ZOSTER
     Dosage: 500 MG, TID
     Route: 048
     Dates: start: 20120522
  4. VITAMIN B12 [Concomitant]
     Route: 065
     Dates: start: 20120522
  5. ACETAMINOPHEN [Concomitant]
     Dates: start: 20120522

REACTIONS (6)
  - PYREXIA [None]
  - HEADACHE [None]
  - DIZZINESS [None]
  - NAUSEA [None]
  - MUSCULOSKELETAL STIFFNESS [None]
  - DECREASED APPETITE [None]
